FAERS Safety Report 18617504 (Version 1)
Quarter: 2020Q4

REPORT INFORMATION
  Report Type: Spontaneous
  Country: EG (occurrence: EG)
  Receive Date: 20201215
  Receipt Date: 20201215
  Transmission Date: 20210114
  Serious: Yes (Death, Other)
  Sender: FDA-Public Use
  Company Number: EG-PFIZER INC-2020486790

PATIENT
  Age: 58 Year
  Sex: Male

DRUGS (7)
  1. CYTARABINE. [Suspect]
     Active Substance: CYTARABINE
     Dosage: UNK UNK, EVERY 3 WEEKS, FOR  5 DAYS TO BE REPEATED EVERY 3 WEEKS
     Route: 042
     Dates: start: 200007
  2. VINCRISTINE [Suspect]
     Active Substance: VINCRISTINE
     Indication: ACUTE MYELOMONOCYTIC LEUKAEMIA
     Dosage: 1 MG/M2, EVERY 3 WEEKS
     Route: 042
     Dates: start: 20000214
  3. VINCRISTINE [Suspect]
     Active Substance: VINCRISTINE
     Dosage: 1 MG, CYCLIC
     Route: 042
     Dates: start: 20000529
  4. CYTARABINE. [Suspect]
     Active Substance: CYTARABINE
     Indication: ACUTE MYELOMONOCYTIC LEUKAEMIA
     Dosage: 60 MG/M2, OVER 8 H B.I.D DAYS 1-5, REPEATED EVERY 3 WEEKS
     Route: 042
     Dates: start: 20000214
  5. PREDNISONE ACETATE [Suspect]
     Active Substance: PREDNISONE ACETATE
     Dosage: 30 MG
     Route: 048
     Dates: start: 20000529
  6. PREDNISONE ACETATE [Suspect]
     Active Substance: PREDNISONE ACETATE
     Indication: ACUTE MYELOMONOCYTIC LEUKAEMIA
     Dosage: 40 MG, EVERY 3 WEEKS,  DAYS 1-5
     Route: 048
     Dates: start: 20000214
  7. CYCLOPHOSPHAMIDE. [Suspect]
     Active Substance: CYCLOPHOSPHAMIDE
     Indication: ACUTE MYELOMONOCYTIC LEUKAEMIA
     Dosage: 600 MG/M2, EVERY 3 WEEKS, DAY 1
     Route: 042
     Dates: start: 20000214

REACTIONS (2)
  - Hepatocellular carcinoma [Fatal]
  - Second primary malignancy [Fatal]
